FAERS Safety Report 10161072 (Version 1)
Quarter: 2014Q2

REPORT INFORMATION
  Report Type: Spontaneous
  Country: US (occurrence: US)
  Receive Date: 20140508
  Receipt Date: 20140508
  Transmission Date: 20141212
  Serious: No
  Sender: FDA-Public Use
  Company Number: US-PFIZER INC-2014122440

PATIENT
  Sex: 0

DRUGS (2)
  1. NEURONTIN [Suspect]
     Indication: CEREBELLAR ATAXIA
     Dosage: UNK
  2. NEURONTIN [Suspect]
     Indication: NEUROPATHY PERIPHERAL

REACTIONS (3)
  - Therapeutic response changed [Unknown]
  - Energy increased [Unknown]
  - Libido increased [Unknown]
